FAERS Safety Report 5653733-3 (Version None)
Quarter: 2008Q1

REPORT INFORMATION
  Report Type: 
  Country: None (occurrence: None)
  Receive Date: 20080204
  Receipt Date: 20070926
  Transmission Date: 20080703
  Serious: Yes (Other)
  Sender: FDA-Public Use
  Company Number: PHEH2007US12899

PATIENT
  Age: 6 Year
  Sex: Male

DRUGS (1)
  1. RITALIN [Suspect]
     Indication: ATTENTION DEFICIT/HYPERACTIVITY DISORDER
     Dosage: 5 MG, ORAL
     Route: 048

REACTIONS (4)
  - AGGRESSION [None]
  - BLOOD PRESSURE INCREASED [None]
  - FIGHT IN SCHOOL [None]
  - SCREAMING [None]
